FAERS Safety Report 8430407 (Version 3)
Quarter: 2012Q4

REPORT INFORMATION
  Report Type: 
  Country: NL (occurrence: NL)
  Receive Date: 20120228
  Receipt Date: 20121108
  Transmission Date: 20130627
  Serious: Yes (Life-Threatening, Hospitalization)
  Sender: FDA-Public Use
  Company Number: PHHO2012NL003333

PATIENT
  Age: 39 Year
  Sex: Male
  Weight: 85 kg

DRUGS (2)
  1. MYCOPHENOLIC ACID [Suspect]
     Indication: STEM CELL TRANSPLANT
     Dosage: 1080 mg, UNK
     Route: 048
     Dates: start: 20120216
  2. SANDIMMUN [Suspect]
     Indication: STEM CELL TRANSPLANT
     Dosage: 130 mg, UNK
     Route: 042
     Dates: start: 20120213

REACTIONS (2)
  - Respiratory failure [Recovered/Resolved]
  - Pneumonia viral [Recovered/Resolved]
